FAERS Safety Report 19996989 (Version 1)
Quarter: 2021Q4

REPORT INFORMATION
  Report Type: Spontaneous
  Country: US (occurrence: US)
  Receive Date: 20211026
  Receipt Date: 20211026
  Transmission Date: 20220303
  Serious: Yes (Hospitalization)
  Sender: FDA-Public Use
  Company Number: None

PATIENT
  Age: 24 Year
  Sex: Male
  Weight: 62.4 kg

DRUGS (3)
  1. PALIPERIDONE PALMITATE [Suspect]
     Active Substance: PALIPERIDONE PALMITATE
     Indication: Schizophrenia
     Dates: start: 20210304, end: 20210305
  2. Paliperidone Palmitate 234mg [Concomitant]
     Dates: start: 20210304, end: 20210305
  3. RISPERIDONE [Concomitant]
     Active Substance: RISPERIDONE
     Dates: start: 20210217, end: 20210304

REACTIONS (1)
  - Dystonia [None]

NARRATIVE: CASE EVENT DATE: 20210305
